FAERS Safety Report 4422036-7 (Version None)
Quarter: 2004Q3

REPORT INFORMATION
  Report Type: 
  Country: None (occurrence: None)
  Receive Date: 20040804
  Receipt Date: 20040709
  Transmission Date: 20050211
  Serious: Yes (Other)
  Sender: FDA-Public Use
  Company Number: USA030434063

PATIENT
  Age: 50 Year
  Sex: Male

DRUGS (2)
  1. PROZAC [Suspect]
     Indication: DEPRESSION
     Dosage: 70 MG/DAY
     Route: 048
     Dates: start: 19920101
  2. PROZAC [Suspect]
     Indication: OBSESSIVE-COMPULSIVE DISORDER
     Dosage: 70 MG/DAY
     Route: 048
     Dates: start: 19920101

REACTIONS (4)
  - ASTHMA [None]
  - DISEASE RECURRENCE [None]
  - EOSINOPHILIA [None]
  - LUNG INFILTRATION [None]
